FAERS Safety Report 15220286 (Version 2)
Quarter: 2018Q3

REPORT INFORMATION
  Report Type: Spontaneous
  Country: US (occurrence: US)
  Receive Date: 20180731
  Receipt Date: 20180731
  Transmission Date: 20181010
  Serious: Yes (Hospitalization, Other)
  Sender: FDA-Public Use
  Company Number: US-APOTEX-2018AP018184

PATIENT
  Age: 19 Year
  Sex: Female

DRUGS (2)
  1. PHYSOSTIGMINE [Concomitant]
     Active Substance: PHYSOSTIGMINE
     Indication: PRODUCT USED FOR UNKNOWN INDICATION
     Dosage: 2 MG, UNK
     Route: 042
  2. DIPHENHYDRAMINE. [Suspect]
     Active Substance: DIPHENHYDRAMINE
     Indication: PRODUCT USED FOR UNKNOWN INDICATION
     Dosage: 3000 MG, UNK
     Route: 065

REACTIONS (12)
  - Stillbirth [Unknown]
  - Tachycardia [Unknown]
  - Toxicity to various agents [Unknown]
  - Condition aggravated [Unknown]
  - Labour stimulation [Unknown]
  - Intentional overdose [Unknown]
  - Respiratory failure [Unknown]
  - Mucosal dryness [Unknown]
  - Delirium [Unknown]
  - Exposure during pregnancy [Unknown]
  - Suicide attempt [Unknown]
  - Electrocardiogram QRS complex prolonged [Unknown]
